FAERS Safety Report 24453706 (Version 2)
Quarter: 2024Q4

REPORT INFORMATION
  Report Type: Report from Study
  Country: US (occurrence: US)
  Receive Date: 20241017
  Receipt Date: 20241018
  Transmission Date: 20250114
  Serious: No
  Sender: ROCHE
  Company Number: US-ROCHE-3311434

PATIENT
  Age: 51 Year
  Sex: Male

DRUGS (1)
  1. RITUXAN [Suspect]
     Active Substance: RITUXIMAB
     Indication: Myelitis transverse
     Dosage: INFUSE 1000MG INTRAVENOUSLY ON DAY 1 AND DAY 15 AND THEN EVERY 6 MONTHS
     Route: 042
     Dates: start: 20230313, end: 20240313

REACTIONS (2)
  - Off label use [Unknown]
  - No adverse event [Unknown]
